FAERS Safety Report 9417199 (Version 1)
Quarter: 2013Q3

REPORT INFORMATION
  Report Type: Spontaneous
  Country: US (occurrence: None)
  Receive Date: 20130722
  Receipt Date: 20130722
  Transmission Date: 20140515
  Serious: Yes (Hospitalization)
  Sender: FDA-Public Use
  Company Number: None

PATIENT
  Age: 83 Year
  Sex: Female

DRUGS (1)
  1. TUBERSOL [Suspect]
     Indication: TUBERCULOSIS
     Route: 023
     Dates: start: 20130715

REACTIONS (4)
  - Rash pruritic [None]
  - Blood pressure decreased [None]
  - Hypersensitivity [None]
  - Pneumonia [None]
